FAERS Safety Report 8807104 (Version 1)
Quarter: 2012Q4

REPORT INFORMATION
  Report Type: 
  Country: BR (occurrence: BR)
  Receive Date: 20120925
  Receipt Date: 20120925
  Transmission Date: 20130627
  Serious: Yes (Death)
  Sender: FDA-Public Use
  Company Number: BR-ASTRAZENECA-2012SE73622

PATIENT
  Age: 19 Year
  Sex: Female

DRUGS (4)
  1. ATENOLOL [Suspect]
     Indication: MIGRAINE
     Route: 048
  2. NORTRIPTYLINE [Suspect]
     Indication: MIGRAINE
     Route: 048
  3. FLUNARIZINE [Suspect]
     Indication: MIGRAINE
     Route: 048
  4. PIROXICAM [Suspect]
     Indication: MIGRAINE
     Route: 048

REACTIONS (5)
  - Psychotic disorder [Fatal]
  - Fall [Fatal]
  - Haematoma [Fatal]
  - Suicide attempt [Fatal]
  - Homicide [Fatal]
